FAERS Safety Report 12806305 (Version 2)
Quarter: 2016Q4

REPORT INFORMATION
  Report Type: Spontaneous
  Country: US (occurrence: US)
  Receive Date: 20161004
  Receipt Date: 20161012
  Transmission Date: 20170207
  Serious: No
  Sender: FDA-Public Use
  Company Number: US-UNICHEM LABORATORIES LIMITED-UCM201508-000698

PATIENT
  Sex: Male

DRUGS (1)
  1. HYDROCHOLOTHIAZIDE 25 MG TABLET [Suspect]
     Active Substance: HYDROCHLOROTHIAZIDE

REACTIONS (6)
  - Palpitations [Unknown]
  - Contusion [Unknown]
  - Chest pain [Unknown]
  - Malaise [Unknown]
  - Electrocardiogram abnormal [Unknown]
  - Supraventricular extrasystoles [Unknown]
